FAERS Safety Report 9298496 (Version 2)
Quarter: 2013Q2

REPORT INFORMATION
  Report Type: Spontaneous
  Country: EE (occurrence: EE)
  Receive Date: 20130520
  Receipt Date: 20130607
  Transmission Date: 20140414
  Serious: Yes (Death, Life-Threatening, Hospitalization)
  Sender: FDA-Public Use
  Company Number: EE-ASTRAZENECA-2013SE30196

PATIENT
  Age: 68 Year
  Sex: Female

DRUGS (5)
  1. BRILIQUE [Suspect]
     Indication: ATHEROSCLEROSIS PROPHYLAXIS
     Route: 048
     Dates: start: 20121024, end: 20130301
  2. ASPIRIN [Suspect]
     Route: 065
     Dates: start: 20121024, end: 20130307
  3. RAMIPRIL [Concomitant]
     Dates: start: 20130107
  4. ATORVASTATIN [Concomitant]
     Dates: start: 20121024
  5. TREXAN [Concomitant]
     Dates: start: 20121220

REACTIONS (4)
  - Hydrocephalus [Fatal]
  - CNS ventriculitis [Fatal]
  - Coma [Unknown]
  - Haemorrhage intracranial [Unknown]
